FAERS Safety Report 14334352 (Version 3)
Quarter: 2018Q2

REPORT INFORMATION
  Report Type: Report from Study
  Country: US (occurrence: US)
  Receive Date: 20171228
  Receipt Date: 20180507
  Transmission Date: 20180711
  Serious: Yes (Hospitalization)
  Sender: FDA-Public Use
  Company Number: US-ACTELION-A-US2017-164651

PATIENT
  Age: 66 Year
  Sex: Female

DRUGS (21)
  1. ADVAIR HFA [Concomitant]
     Active Substance: FLUTICASONE PROPIONATE\SALMETEROL XINAFOATE
  2. METFORMIN [Concomitant]
     Active Substance: METFORMIN HYDROCHLORIDE
  3. LIPITOR [Concomitant]
     Active Substance: ATORVASTATIN CALCIUM
  4. LORAZEPAM. [Concomitant]
     Active Substance: LORAZEPAM
  5. OPSUMIT [Suspect]
     Active Substance: MACITENTAN
     Indication: PULMONARY ARTERIAL HYPERTENSION
     Dosage: 10 MG, QD
     Route: 048
  6. LORATADINE. [Concomitant]
     Active Substance: LORATADINE
  7. PROAIR HFA [Concomitant]
     Active Substance: ALBUTEROL SULFATE
  8. POTASSIUM [Concomitant]
     Active Substance: POTASSIUM
  9. SODIUM BICARBONATE. [Concomitant]
     Active Substance: SODIUM BICARBONATE
  10. COREG [Concomitant]
     Active Substance: CARVEDILOL
  11. OMEPRAZOLE. [Concomitant]
     Active Substance: OMEPRAZOLE
  12. KCL [Concomitant]
     Active Substance: POTASSIUM CHLORIDE
  13. FERROUS SULFATE. [Concomitant]
     Active Substance: FERROUS SULFATE
  14. ATROVENT [Concomitant]
     Active Substance: IPRATROPIUM BROMIDE
  15. PREDNISONE. [Concomitant]
     Active Substance: PREDNISONE
  16. TRAMADOL. [Concomitant]
     Active Substance: TRAMADOL
  17. HYDROXYCHLOROQUINE SULFATE. [Concomitant]
     Active Substance: HYDROXYCHLOROQUINE SULFATE
  18. FLUTICASONE. [Concomitant]
     Active Substance: FLUTICASONE
  19. ADCIRCA [Concomitant]
     Active Substance: TADALAFIL
  20. TETRACYCLINE [Concomitant]
     Active Substance: TETRACYCLINE
  21. ASTEPRO [Concomitant]
     Active Substance: AZELASTINE HYDROCHLORIDE

REACTIONS (12)
  - Gastritis [Unknown]
  - Gastroenteritis viral [Recovered/Resolved]
  - Drug dose omission [Unknown]
  - Chest pain [Unknown]
  - Diarrhoea [Recovered/Resolved]
  - Dizziness [Unknown]
  - Coronary arterial stent insertion [Unknown]
  - Pneumonia [Recovered/Resolved]
  - Vomiting [Unknown]
  - Gastroenteritis [Recovered/Resolved]
  - Myocardial infarction [Unknown]
  - Coronary artery occlusion [Unknown]

NARRATIVE: CASE EVENT DATE: 20180407
